FAERS Safety Report 5573290-X (Version None)
Quarter: 2007Q4

REPORT INFORMATION
  Report Type: 
  Country: None (occurrence: None)
  Receive Date: 20071224
  Receipt Date: 20071219
  Transmission Date: 20080405
  Serious: Yes (Other)
  Sender: FDA-Public Use
  Company Number: PHEH2007US15952

PATIENT
  Sex: Female

DRUGS (1)
  1. LOTREL [Suspect]

REACTIONS (4)
  - ASTHENIA [None]
  - DRY MOUTH [None]
  - FATIGUE [None]
  - RENAL IMPAIRMENT [None]
